FAERS Safety Report 7013373-0 (Version None)
Quarter: 2010Q3

REPORT INFORMATION
  Report Type: 
  Country: None (occurrence: None)
  Receive Date: 20100924
  Receipt Date: 20100921
  Transmission Date: 20110219
  Serious: Yes (Hospitalization)
  Sender: FDA-Public Use
  Company Number: FR-ABBOTT-04P-056-0281612-00

PATIENT
  Age: 42 Year
  Sex: Male
  Weight: 113 kg

DRUGS (9)
  1. ISOPTIN [Suspect]
     Indication: NON-OBSTRUCTIVE CARDIOMYOPATHY
     Route: 048
  2. ISOPTIN [Suspect]
     Indication: CARDIAC DISORDER
  3. DEPAKENE [Suspect]
     Indication: PRODUCT USED FOR UNKNOWN INDICATION
     Route: 048
     Dates: start: 19990101
  4. MEPRONIZINE [Suspect]
     Indication: PRODUCT USED FOR UNKNOWN INDICATION
     Route: 048
  5. FLUPHENAZINE DECANOATE [Suspect]
     Indication: PRODUCT USED FOR UNKNOWN INDICATION
     Dates: start: 19940101
  6. ETHYL LOFLAZEPATE [Suspect]
     Indication: NON-OBSTRUCTIVE CARDIOMYOPATHY
     Route: 048
  7. ETHYL LOFLAZEPATE [Suspect]
     Indication: CARDIAC DISORDER
  8. ZOLPIDEM [Suspect]
     Indication: PRODUCT USED FOR UNKNOWN INDICATION
     Route: 048
  9. ALLOPURINOL [Suspect]
     Indication: PRODUCT USED FOR UNKNOWN INDICATION
     Route: 048

REACTIONS (5)
  - DYSPNOEA [None]
  - HYPERKALAEMIA [None]
  - INAPPROPRIATE ANTIDIURETIC HORMONE SECRETION [None]
  - LUNG DISORDER [None]
  - OEDEMA [None]
